FAERS Safety Report 6436139-9 (Version None)
Quarter: 2009Q4

REPORT INFORMATION
  Report Type: 
  Country: None (occurrence: None)
  Receive Date: 20091111
  Receipt Date: 20091110
  Transmission Date: 20100525
  Serious: Yes (Hospitalization)
  Sender: FDA-Public Use
  Company Number: FR-WYE-G04842409

PATIENT
  Sex: Male

DRUGS (4)
  1. ADVIL ENFANTS ET NOURRISSONS [Suspect]
     Indication: LARYNGITIS
     Dosage: UNKNOWN
     Route: 048
     Dates: start: 20090926, end: 20091004
  2. CLAMOXYL [Concomitant]
     Indication: LARYNGITIS
     Dosage: UNKNOWN
     Route: 048
     Dates: start: 20090926, end: 20091004
  3. DOLIPRANE [Suspect]
     Indication: LARYNGITIS
     Dosage: UNKNOWN
     Route: 048
     Dates: start: 20090926, end: 20091004
  4. THIOVALONE [Suspect]
     Indication: LARYNGITIS
     Dosage: UNKNOWN
     Route: 048
     Dates: start: 20090926, end: 20091004

REACTIONS (6)
  - APHTHOUS STOMATITIS [None]
  - CONJUNCTIVITIS [None]
  - DERMATITIS BULLOUS [None]
  - PYREXIA [None]
  - RASH MACULAR [None]
  - WHITE BLOOD CELL COUNT INCREASED [None]
